FAERS Safety Report 9953805 (Version 1)
Quarter: 2014Q1

REPORT INFORMATION
  Report Type: Spontaneous
  Country: US (occurrence: US)
  Receive Date: 20140304
  Receipt Date: 20140304
  Transmission Date: 20141002
  Serious: Yes (Hospitalization)
  Sender: FDA-Public Use
  Company Number: US-BRISTOL-MYERS SQUIBB COMPANY-20263224

PATIENT
  Age: 58 Year
  Sex: Female

DRUGS (4)
  1. ABILIFY [Suspect]
     Indication: SCHIZOAFFECTIVE DISORDER
     Dosage: 15MG
  2. RISPERIDONE [Concomitant]
     Dosage: 3MG
  3. LEXAPRO [Concomitant]
  4. FISH OIL [Concomitant]

REACTIONS (7)
  - Violence-related symptom [Unknown]
  - Anxiety [Unknown]
  - Paraesthesia [Unknown]
  - Fatigue [Unknown]
  - Fall [Unknown]
  - Somnolence [Unknown]
  - Pain [Unknown]
